FAERS Safety Report 14447298 (Version 1)
Quarter: 2018Q1

REPORT INFORMATION
  Report Type: Spontaneous
  Country: CH (occurrence: CH)
  Receive Date: 20180126
  Receipt Date: 20180126
  Transmission Date: 20180509
  Serious: Yes (Other)
  Sender: FDA-Public Use
  Company Number: CH-SA-2018SA014890

PATIENT
  Age: 73 Year
  Sex: Male
  Weight: 65 kg

DRUGS (15)
  1. MABTHERA [Concomitant]
     Active Substance: RITUXIMAB
     Indication: LYMPHOMA
     Dosage: EINMALIG AM 4.11.2017 650MG
     Route: 042
     Dates: start: 20171104
  2. CLEXANE [Concomitant]
     Active Substance: ENOXAPARIN SODIUM
     Indication: THROMBOSIS PROPHYLAXIS
     Route: 058
     Dates: start: 20171031
  3. LEUCOVORIN. [Concomitant]
     Active Substance: LEUCOVORIN
     Indication: PROPHYLAXIS
     Route: 042
     Dates: start: 20171105, end: 20171107
  4. TAVEGYL [Concomitant]
     Active Substance: CLEMASTINE FUMARATE
     Indication: PROPHYLAXIS
     Dosage: EINMALIG 4MG VOR GABE MABTHERA AM 4.11.2017
     Route: 042
     Dates: start: 20171104
  5. ONDANSETRON [Concomitant]
     Active Substance: ONDANSETRON
     Indication: PROPHYLAXIS OF NAUSEA AND VOMITING
     Route: 042
     Dates: start: 20171104, end: 20171107
  6. PARAGOL [Concomitant]
     Active Substance: MINERAL OIL\PHENOLPHTHALEIN
     Indication: PRODUCT USED FOR UNKNOWN INDICATION
     Dosage: EMULSION
     Route: 048
  7. SOLU-MEDROL [Concomitant]
     Active Substance: METHYLPREDNISOLONE SODIUM SUCCINATE
     Indication: PROPHYLAXIS
     Route: 042
     Dates: start: 20171104, end: 20171106
  8. DAFALGAN [Concomitant]
     Active Substance: ACETAMINOPHEN
     Indication: PAIN
     Dosage: EINMALIG AM 2.11.2017
     Route: 042
     Dates: start: 20171102
  9. LASIX [Concomitant]
     Active Substance: FUROSEMIDE
     Indication: FLUID OVERLOAD
     Dosage: 20MG AM 4.11.2017 UM 16 UHR?40MG AM 5.11.2017 UM 10 UHR
     Route: 042
     Dates: start: 20171104, end: 20171106
  10. METHOTREXAT [Suspect]
     Active Substance: METHOTREXATE
     Indication: LYMPHOMA
     Route: 041
     Dates: start: 20171104, end: 20171104
  11. BACTRIM [Concomitant]
     Active Substance: SULFAMETHOXAZOLE\TRIMETHOPRIM
     Indication: PROPHYLAXIS
     Dosage: 1 TABL 800/160 3MAL DIE WOCHE
     Route: 048
     Dates: start: 20171031
  12. NEXIUM MUPS [Concomitant]
     Active Substance: ESOMEPRAZOLE MAGNESIUM
     Indication: PROPHYLAXIS
     Route: 048
     Dates: start: 20171101
  13. CYTOSAR [Concomitant]
     Active Substance: CYTARABINE
     Indication: LYMPHOMA
     Dosage: 12-ST?NDLICH 3460MG AM 4. UND 5.11.2017
     Route: 042
     Dates: start: 20171105, end: 20171106
  14. FASTURTEC [Suspect]
     Active Substance: RASBURICASE
     Indication: LYMPHOMA
     Route: 042
     Dates: start: 20171104, end: 20171104
  15. ZYLORIC [Concomitant]
     Active Substance: ALLOPURINOL
     Indication: PROPHYLAXIS
     Route: 048
     Dates: start: 20171105, end: 20171110

REACTIONS (1)
  - Methaemoglobinaemia [Recovered/Resolved]

NARRATIVE: CASE EVENT DATE: 20171105
